FAERS Safety Report 8589995-2 (Version None)
Quarter: 2012Q3

REPORT INFORMATION
  Report Type: 
  Country: None (occurrence: None)
  Receive Date: 20120813
  Receipt Date: 20120731
  Transmission Date: 20120928
  Serious: Yes (Disabling, Other)
  Sender: FDA-Public Use
  Company Number: US-ELI_LILLY_AND_COMPANY-US201207000234

PATIENT
  Sex: Female
  Weight: 84.5 kg

DRUGS (12)
  1. LIPITOR [Concomitant]
     Dosage: 20 MG, UNK
  2. FLUTICASONE PROPIONATE [Concomitant]
     Dosage: UNK, BID
  3. METOPROLOL [Concomitant]
     Dosage: UNK, QD
  4. ASPIRIN [Concomitant]
     Dosage: 81 MG, QD
  5. GABAPENTIN [Concomitant]
     Dosage: 100 MG, BID
  6. SPIRIVA [Concomitant]
  7. FUROSEMIDE [Concomitant]
     Dosage: 20 MG, BID
  8. HUMALOG [Suspect]
     Indication: DIABETES MELLITUS
     Dosage: 40 U, EACH MORNING
  9. HUMALOG [Suspect]
     Dosage: 28 U, EACH EVENING
  10. GABAPENTIN [Concomitant]
     Dosage: 300 MG, EACH EVENING
  11. TRAMADOL HCL [Concomitant]
     Indication: PAIN
     Dosage: 50 MG, PRN
  12. VITAMIN E                          /00110501/ [Concomitant]

REACTIONS (2)
  - DIABETES MELLITUS INADEQUATE CONTROL [None]
  - BLINDNESS [None]
